FAERS Safety Report 15903087 (Version 6)
Quarter: 2021Q3

REPORT INFORMATION
  Report Type: Report from Study
  Country: GB (occurrence: GB)
  Receive Date: 20190202
  Receipt Date: 20210726
  Transmission Date: 20211014
  Serious: Yes (Life-Threatening, Hospitalization, Disabling, Other)
  Sender: FDA-Public Use
  Company Number: GB-ACCORD-105396

PATIENT
  Age: 42 Year
  Sex: Female
  Weight: 98 kg

DRUGS (87)
  1. LEVOMEPROMAZINE [Concomitant]
     Active Substance: LEVOMEPROMAZINE
  2. ALTEPLASE. [Concomitant]
     Active Substance: ALTEPLASE
     Indication: COLITIS ISCHAEMIC
  3. BISOPROLOL [Concomitant]
     Active Substance: BISOPROLOL
     Indication: ACUTE KIDNEY INJURY
     Route: 065
  4. CALCIUM GLUCONATE. [Concomitant]
     Active Substance: CALCIUM GLUCONATE
     Indication: COLITIS ISCHAEMIC
  5. CIPROFLOXACIN. [Concomitant]
     Active Substance: CIPROFLOXACIN
     Indication: NEUTROPENIC SEPSIS
     Route: 065
  6. ERDOTIN [Concomitant]
     Active Substance: ERDOSTEINE
     Indication: PNEUMONIA
     Route: 065
  7. FLUCONAZOLE. [Concomitant]
     Active Substance: FLUCONAZOLE
     Indication: NEUTROPENIC SEPSIS
     Route: 065
  8. FRAGMIN [Concomitant]
     Active Substance: DALTEPARIN SODIUM
     Indication: VOMITING
     Route: 065
  9. HARTMANN^S SOLUTION [Concomitant]
     Active Substance: CALCIUM CHLORIDE\POTASSIUM CHLORIDE\SODIUM CHLORIDE\SODIUM LACTATE
     Route: 065
  10. OMEPRAZOLE. [Concomitant]
     Active Substance: OMEPRAZOLE
     Indication: COLITIS ISCHAEMIC
     Route: 065
  11. ORAMORPH [Concomitant]
     Active Substance: MORPHINE SULFATE
     Indication: PRODUCT USED FOR UNKNOWN INDICATION
  12. PROPOFOL. [Concomitant]
     Active Substance: PROPOFOL
     Indication: COLITIS ISCHAEMIC
     Route: 065
  13. DOCETAXEL. [Suspect]
     Active Substance: DOCETAXEL
     Indication: BREAST CANCER METASTATIC
     Route: 042
     Dates: start: 20160718, end: 20160830
  14. CLOPIDOGREL [Concomitant]
     Active Substance: CLOPIDOGREL BISULFATE
     Indication: PNEUMONIA
  15. CODEINE [Concomitant]
     Active Substance: CODEINE
  16. TAUROLOCK [Concomitant]
     Active Substance: TAUROLIDINE
  17. ALFENTANIL. [Concomitant]
     Active Substance: ALFENTANIL
  18. ASPIRIN. [Concomitant]
     Active Substance: ASPIRIN
     Indication: COLITIS ISCHAEMIC
     Route: 065
  19. CHLORHEXIDINE [Concomitant]
     Active Substance: CHLORHEXIDINE
     Indication: COLITIS ISCHAEMIC
     Route: 065
  20. CHLORPHENAMINE/CHLORPHENAMINE MALEATE/CHLORPHENAMINE RESINATE/CHLORPHENAMINE TANNATE [Concomitant]
     Active Substance: CHLORPHENIRAMINE
     Indication: NEUTROPENIC SEPSIS
     Route: 065
  21. GENTAMICIN. [Concomitant]
     Active Substance: GENTAMICIN
     Indication: PRODUCT USED FOR UNKNOWN INDICATION
     Route: 065
  22. NOREPINEPHRINE. [Concomitant]
     Active Substance: NOREPINEPHRINE
     Indication: PRODUCT USED FOR UNKNOWN INDICATION
     Route: 065
  23. DOCETAXEL. [Suspect]
     Active Substance: DOCETAXEL
     Indication: BREAST CANCER METASTATIC
     Route: 042
     Dates: start: 20160830
  24. DOXYCYCLINE. [Suspect]
     Active Substance: DOXYCYCLINE
     Indication: PRODUCT USED FOR UNKNOWN INDICATION
     Route: 042
     Dates: start: 20160830
  25. PERTUZUMAB. [Suspect]
     Active Substance: PERTUZUMAB
     Indication: BREAST CANCER METASTATIC
     Dosage: 840MG FIRST DOSE THEN 420MG, DOSAGE FORM: INFUSION, SOLUTION
     Route: 042
     Dates: start: 20160808, end: 20160830
  26. OXYCODONE [Concomitant]
     Active Substance: OXYCODONE
     Indication: PAIN
  27. MEROPENEM. [Concomitant]
     Active Substance: MEROPENEM
  28. TRANEXAMIC ACID. [Concomitant]
     Active Substance: TRANEXAMIC ACID
  29. BONJELA [Concomitant]
     Active Substance: CETALKONIUM CHLORIDE\CHOLINE SALICYLATE\MENTHOL
     Route: 065
  30. DEXTROSE. [Concomitant]
     Active Substance: DEXTROSE
     Indication: PRODUCT USED FOR UNKNOWN INDICATION
     Route: 065
  31. ERDOSTEINE [Concomitant]
     Active Substance: ERDOSTEINE
     Indication: PNEUMONIA
     Route: 065
  32. ERYTHROMYCIN. [Concomitant]
     Active Substance: ERYTHROMYCIN
     Indication: NEUTROPENIC SEPSIS
     Route: 065
  33. MIDAZOLAM. [Concomitant]
     Active Substance: MIDAZOLAM
     Indication: COLITIS ISCHAEMIC
     Route: 065
  34. CHLORHEXIDINE HYDROCHLORIDE/NEOMYCIN SULFATE [Concomitant]
     Active Substance: CHLORHEXIDINE HYDROCHLORIDE\NEOMYCIN SULFATE
     Indication: COLITIS ISCHAEMIC
     Route: 065
  35. DOXYCYCLINE. [Suspect]
     Active Substance: DOXYCYCLINE
     Indication: PRODUCT USED FOR UNKNOWN INDICATION
     Route: 042
     Dates: start: 20160708
  36. LETROZOLE. [Suspect]
     Active Substance: LETROZOLE
     Indication: PRODUCT USED FOR UNKNOWN INDICATION
     Route: 048
     Dates: start: 20170124
  37. TINZAPARIN/TINZAPARIN SODIUM [Concomitant]
     Active Substance: TINZAPARIN SODIUM
  38. FLUCLOXACILLIN [Concomitant]
     Active Substance: FLUCLOXACILLIN
  39. MORPHINE [Concomitant]
     Active Substance: MORPHINE
  40. ARGATROBAN. [Concomitant]
     Active Substance: ARGATROBAN
     Indication: COLITIS ISCHAEMIC
     Route: 065
  41. FILGRASTIM [Concomitant]
     Active Substance: FILGRASTIM
     Indication: NEUTROPENIC SEPSIS
     Route: 065
  42. MAGNESIUM SULFATE. [Concomitant]
     Active Substance: MAGNESIUM SULFATE
     Indication: PRODUCT USED FOR UNKNOWN INDICATION
     Route: 065
  43. METOCLOPRAMIDE. [Concomitant]
     Active Substance: METOCLOPRAMIDE
     Indication: COLITIS ISCHAEMIC
     Route: 065
  44. METRONIDAZOLE. [Concomitant]
     Active Substance: METRONIDAZOLE
     Indication: COLITIS ISCHAEMIC
     Route: 065
  45. SODIUM LACTATE. [Concomitant]
     Active Substance: SODIUM LACTATE
     Indication: PRODUCT USED FOR UNKNOWN INDICATION
     Route: 065
  46. TAUROLIDINE/TAUROLIDINE CITRATE [Concomitant]
     Indication: PRODUCT USED FOR UNKNOWN INDICATION
     Route: 065
  47. TAZOCIN [Concomitant]
     Active Substance: PIPERACILLIN SODIUM\TAZOBACTAM SODIUM
     Indication: NEUTROPENIC SEPSIS
     Route: 065
  48. HERCEPTIN [Suspect]
     Active Substance: TRASTUZUMAB
     Indication: BREAST CANCER METASTATIC
     Dosage: 798MG LOADING THEN 609MG, INFUSION, SOLUTION
     Route: 042
     Dates: start: 20160718, end: 20160830
  49. PARACETAMOL [Concomitant]
     Active Substance: ACETAMINOPHEN
     Indication: PAIN
     Route: 048
     Dates: start: 20160908
  50. DIHYDROCODEINE [Concomitant]
     Active Substance: DIHYDROCODEINE
     Indication: PAIN
     Route: 048
     Dates: start: 20160908
  51. SALBUTAMOL [Concomitant]
     Active Substance: ALBUTEROL
     Indication: PNEUMONIA
  52. FUROSEMIDE. [Concomitant]
     Active Substance: FUROSEMIDE
     Indication: ACUTE KIDNEY INJURY
  53. HYDROCORTISONE. [Concomitant]
     Active Substance: HYDROCORTISONE
     Indication: NEUTROPENIC SEPSIS
  54. BUSCOPAN [Concomitant]
     Active Substance: BUTYLSCOPOLAMINE BROMIDE
     Indication: COLITIS ISCHAEMIC
  55. CALCIUM CHLORIDE DIHYDRATE [Concomitant]
     Active Substance: CALCIUM CHLORIDE
     Indication: PRODUCT USED FOR UNKNOWN INDICATION
     Route: 065
  56. EPOPROSTENOL/EPOPROSTENOL SODIUM [Concomitant]
     Active Substance: EPOPROSTENOL SODIUM
     Indication: ACUTE KIDNEY INJURY
     Route: 065
  57. FONDAPARINUX/FONDAPARINUX SODIUM [Concomitant]
     Active Substance: FONDAPARINUX
     Indication: COLITIS ISCHAEMIC
     Route: 065
  58. RAMIPRIL. [Concomitant]
     Active Substance: RAMIPRIL
     Indication: ACUTE KIDNEY INJURY
     Route: 065
  59. HERCEPTIN [Suspect]
     Active Substance: TRASTUZUMAB
     Indication: BREAST CANCER METASTATIC
     Dosage: INFUSION, SOLUTION
     Route: 042
     Dates: start: 20160830, end: 20160830
  60. DOXYCYCLINE. [Suspect]
     Active Substance: DOXYCYCLINE
     Indication: PRODUCT USED FOR UNKNOWN INDICATION
     Route: 042
     Dates: start: 20160718
  61. PERTUZUMAB. [Suspect]
     Active Substance: PERTUZUMAB
     Indication: BREAST CANCER METASTATIC
     Dosage: 840MG FIRST DOSE THEN 420MG, DOSAGE FORM: INFUSION, SOLUTION
     Route: 042
     Dates: start: 20160718, end: 20160830
  62. DOXYCYCLINE. [Suspect]
     Active Substance: DOXYCYCLINE
     Indication: RASH
     Route: 048
     Dates: start: 20160803, end: 20160821
  63. ONDANSETRON [Concomitant]
     Active Substance: ONDANSETRON
     Indication: NAUSEA
     Route: 048
     Dates: start: 20160908
  64. MAGNASPARTATE [Concomitant]
     Indication: BLOOD MAGNESIUM DECREASED
     Dates: start: 20160908
  65. DIAZEPAM. [Concomitant]
     Active Substance: DIAZEPAM
     Indication: COLITIS ISCHAEMIC
     Route: 048
  66. GLYCERYL TRINITRATE [Concomitant]
     Active Substance: NITROGLYCERIN
     Indication: PRODUCT USED FOR UNKNOWN INDICATION
     Route: 065
  67. METARAMINOL [Concomitant]
     Active Substance: METARAMINOL
     Indication: COLITIS ISCHAEMIC
     Route: 065
  68. SODIUM CITRATE. [Concomitant]
     Active Substance: SODIUM CITRATE
     Indication: PRODUCT USED FOR UNKNOWN INDICATION
     Route: 065
  69. LOPERAMIDE [Concomitant]
     Active Substance: LOPERAMIDE
     Indication: DIARRHOEA
     Dosage: UP TO 4 TIMES A DAY IF NEEDED FOR LOOSE
     Route: 048
     Dates: start: 20161230
  70. TOLTERODINE/TOLTERODINE L?TARTRATE [Concomitant]
     Active Substance: TOLTERODINE TARTRATE
     Indication: ACUTE KIDNEY INJURY
  71. MAGNESIUM SULFATE. [Concomitant]
     Active Substance: MAGNESIUM SULFATE
  72. GLYCERYL TRINITRATE [Concomitant]
     Active Substance: NITROGLYCERIN
     Dosage: GTN
  73. ZOPICLONE [Concomitant]
     Active Substance: ZOPICLONE
  74. HEPARIN [Concomitant]
     Active Substance: HEPARIN SODIUM
     Indication: ACUTE KIDNEY INJURY
     Route: 065
  75. CITALOPRAM [Concomitant]
     Active Substance: CITALOPRAM HYDROBROMIDE
     Indication: DEPRESSION
     Route: 048
     Dates: start: 20160921
  76. CYCLIZINE [Concomitant]
     Active Substance: CYCLIZINE
     Indication: NAUSEA
     Dosage: AS NEEDED
     Route: 048
     Dates: start: 20160908
  77. NOREPINEPHRINE. [Concomitant]
     Active Substance: NOREPINEPHRINE
  78. POTASSIUM [Concomitant]
     Active Substance: POTASSIUM
  79. DANAPAROID/DANAPAROID SODIUM [Concomitant]
  80. GLUCOGEL [Concomitant]
  81. DALTEPARIN [Concomitant]
     Active Substance: DALTEPARIN
     Indication: ACUTE KIDNEY INJURY
     Route: 065
  82. LANSOPRAZOLE. [Concomitant]
     Active Substance: LANSOPRAZOLE
     Route: 048
     Dates: start: 20160908
  83. CALCIUM CARBONATE. [Concomitant]
     Active Substance: CALCIUM CARBONATE
     Indication: ACUTE KIDNEY INJURY
     Route: 065
  84. TEICOPLANIN [Concomitant]
     Active Substance: TEICOPLANIN
     Indication: COLITIS ISCHAEMIC
     Route: 065
  85. LYPRESSIN [Concomitant]
     Active Substance: LYPRESSIN
     Indication: NEUTROPENIC SEPSIS
     Route: 065
  86. DOXYCYCLINE. [Concomitant]
     Active Substance: DOXYCYCLINE
  87. HERCEPTIN [Suspect]
     Active Substance: TRASTUZUMAB
     Indication: BREAST CANCER METASTATIC
     Dosage: INFUSION, SOLUTION
     Route: 042
     Dates: start: 20160808, end: 20160808

REACTIONS (10)
  - Diarrhoea [Recovering/Resolving]
  - Peritonitis [Recovering/Resolving]
  - Neutropenic sepsis [Recovered/Resolved]
  - Colitis ischaemic [Recovered/Resolved]
  - Acute kidney injury [Recovered/Resolved]
  - Vomiting [Recovered/Resolved with Sequelae]
  - Pneumonia [Recovered/Resolved]
  - Abdominal pain [Recovered/Resolved with Sequelae]
  - Colitis [Recovered/Resolved]
  - Perforation [Recovering/Resolving]

NARRATIVE: CASE EVENT DATE: 20160907
